FAERS Safety Report 9066455 (Version 2)
Quarter: 2013Q3

REPORT INFORMATION
  Report Type: Spontaneous
  Country: DE (occurrence: DE)
  Receive Date: 20130214
  Receipt Date: 20130809
  Transmission Date: 20140515
  Serious: Yes (Life-Threatening, Hospitalization)
  Sender: FDA-Public Use
  Company Number: DE-FRI-1000042574

PATIENT
  Age: 83 Year
  Sex: Female
  Weight: 81 kg

DRUGS (11)
  1. MEMANTINE [Suspect]
     Indication: MEMORY IMPAIRMENT
     Dosage: 10 MG
     Route: 048
     Dates: start: 20110621, end: 201110
  2. MEMANTINE [Suspect]
     Dosage: 10 MG
     Route: 048
     Dates: start: 201205, end: 201209
  3. SPIRONOLACTON [Concomitant]
     Dosage: 25 MG
     Route: 048
     Dates: start: 20120525, end: 20120828
  4. BELOC-ZOK [Concomitant]
     Dosage: 190 MG
     Route: 048
  5. BLOPRESS [Concomitant]
     Dosage: 32 MG
     Route: 048
  6. DIGITOXIN [Concomitant]
     Dosage: 0.07 MG
     Route: 048
     Dates: start: 20120827
  7. DICLO 1A PHARMA [Concomitant]
     Dosage: 100 MG
     Route: 048
  8. L-THYROXIN [Concomitant]
     Dosage: 100 MCG
     Route: 048
  9. PRADAXA [Concomitant]
     Dosage: 220 MG
     Route: 048
  10. TOREM [Concomitant]
     Dosage: 10 MG
     Route: 048
  11. NOVALGIN [Concomitant]
     Indication: PAIN
     Dosage: 500-1500 MG AS NEEDED
     Route: 048

REACTIONS (14)
  - Cardiac failure [Recovering/Resolving]
  - Pleural effusion [Recovering/Resolving]
  - Myocarditis [Recovering/Resolving]
  - Eosinophilia [Recovering/Resolving]
  - Pulmonary hypertension [Recovering/Resolving]
  - Pseudolymphoma [Recovering/Resolving]
  - Dyspnoea exertional [Recovering/Resolving]
  - Rhonchi [Recovering/Resolving]
  - Leukocytosis [Recovering/Resolving]
  - Restlessness [Recovering/Resolving]
  - Hyperhidrosis [Recovering/Resolving]
  - Somnolence [Recovering/Resolving]
  - Lymphadenopathy [Recovering/Resolving]
  - N-terminal prohormone brain natriuretic peptide increased [Unknown]
